FAERS Safety Report 6297360-6 (Version None)
Quarter: 2009Q3

REPORT INFORMATION
  Report Type: 
  Country: None (occurrence: None)
  Receive Date: 20090805
  Receipt Date: 20090707
  Transmission Date: 20100115
  Serious: No
  Sender: FDA-Public Use
  Company Number: US-BAYER-200925762NA

PATIENT
  Sex: Female

DRUGS (6)
  1. AVELOX [Suspect]
     Indication: PNEUMONIA PRIMARY ATYPICAL
     Dosage: TOTAL DAILY DOSE: 400 MG  UNIT DOSE: 400 MG
     Dates: start: 20090626, end: 20090702
  2. ACIPHEX [Concomitant]
  3. ATENOLOL [Concomitant]
  4. COZAAR [Concomitant]
  5. LOZOL [Concomitant]
  6. SYNTHROID [Concomitant]

REACTIONS (7)
  - NAUSEA [None]
  - ORAL DISCOMFORT [None]
  - ORAL DISORDER [None]
  - ORAL PAIN [None]
  - STOMATITIS [None]
  - SWOLLEN TONGUE [None]
  - TONGUE DISORDER [None]
